FAERS Safety Report 9441100 (Version 2)
Quarter: 2013Q3

REPORT INFORMATION
  Report Type: Spontaneous
  Country: US (occurrence: US)
  Receive Date: 20130805
  Receipt Date: 20130816
  Transmission Date: 20140515
  Serious: Yes (Other)
  Sender: FDA-Public Use
  Company Number: US-PERRIGO-13US007830

PATIENT
  Age: 34 Year
  Sex: Female
  Weight: 118.82 kg

DRUGS (2)
  1. IBUPROFEN 200MG 647 [Suspect]
     Indication: HEADACHE
     Dosage: 200 MG, SINGLE
     Route: 048
     Dates: start: 20130725, end: 20130725
  2. PROVENTIL [Concomitant]
     Indication: ASTHMA
     Dosage: UNK, PRN
     Route: 055

REACTIONS (10)
  - Dyspnoea [Recovered/Resolved]
  - Lip swelling [Recovered/Resolved]
  - Hypoaesthesia oral [Recovered/Resolved]
  - Dysphonia [Recovered/Resolved]
  - Paraesthesia [Recovered/Resolved]
  - Blood pressure increased [Recovered/Resolved]
  - Rash generalised [Recovered/Resolved]
  - Skin warm [Recovered/Resolved]
  - Urticaria [Recovering/Resolving]
  - Wheezing [Recovered/Resolved]
